FAERS Safety Report 7341531-4 (Version None)
Quarter: 2011Q1

REPORT INFORMATION
  Report Type: 
  Country: None (occurrence: None)
  Receive Date: 20110309
  Receipt Date: 20110228
  Transmission Date: 20110831
  Serious: Yes (Other)
  Sender: FDA-Public Use
  Company Number: CA-JNJFOC-2010028845

PATIENT
  Age: 65 Year
  Sex: Female
  Weight: 79.8 kg

DRUGS (9)
  1. SYNTHROID [Concomitant]
     Indication: THYROID DISORDER
     Dosage: DAILY DOSE TEXT: 0.025MG A DAY
     Route: 065
  2. ZANTAC [Concomitant]
     Indication: GASTROINTESTINAL DISORDER
     Dosage: DAILY DOSE TEXT: 300 ONCE A DAY
     Route: 065
  3. ULTRA STRENGTH ROLAIDS SOFTCHEW VANILLA [Suspect]
     Indication: DYSPEPSIA
     Dosage: DAILY DOSE TEXT: ONE AS NEEDED, USED TWICE IN TOTAL.
     Route: 048
  4. PARIET [Concomitant]
     Indication: GASTROINTESTINAL DISORDER
     Dosage: DAILY DOSE TEXT: 40MG A DAY
     Route: 065
  5. ZOMIG [Concomitant]
     Indication: MIGRAINE
     Dosage: DAILY DOSE TEXT: 2.5MG A DAY
     Route: 065
  6. ALVESCO [Concomitant]
     Indication: ASTHMA
     Dosage: DAILY DOSE TEXT: TWICE DAILY
     Route: 055
  7. DOMPERIDONE [Concomitant]
     Indication: GASTROINTESTINAL DISORDER
     Dosage: DAILY DOSE TEXT: 20MG A DAY
     Route: 065
  8. VENTOLIN [Concomitant]
     Indication: ASTHMA
     Dosage: DAILY DOSE TEXT: TWICE DAILY
     Route: 055
  9. BACTRIN [Concomitant]
     Indication: LOWER RESPIRATORY TRACT INFECTION
     Dosage: DAILY DOSE TEXT: 320MG A DAY
     Route: 065

REACTIONS (3)
  - ORAL DISCOMFORT [None]
  - PRODUCT QUALITY ISSUE [None]
  - ORAL FUNGAL INFECTION [None]
